FAERS Safety Report 7412938-1 (Version None)
Quarter: 2011Q2

REPORT INFORMATION
  Report Type: 
  Country: None (occurrence: None)
  Receive Date: 20110413
  Receipt Date: 20110405
  Transmission Date: 20111010
  Serious: Yes (Other)
  Sender: FDA-Public Use
  Company Number: US-RB-024298-11

PATIENT
  Age: 68 Year
  Sex: Female

DRUGS (1)
  1. MUCINEX DM [Suspect]
     Dosage: PATIENT STARTED DOSING ON 01-APR-2011 TAKING 1 TABLET EVERY 12 HOURS UNTIL 04-APR-2011.
     Route: 048

REACTIONS (2)
  - HAEMATOCHEZIA [None]
  - FEELING ABNORMAL [None]
